FAERS Safety Report 25002183 (Version 1)
Quarter: 2025Q1

REPORT INFORMATION
  Report Type: Spontaneous
  Country: US (occurrence: US)
  Receive Date: 20250224
  Receipt Date: 20250224
  Transmission Date: 20250408
  Serious: No
  Sender: SANOFI AVENTIS
  Company Number: US-SA-2025SA051847

PATIENT
  Age: 87 Year
  Sex: Female

DRUGS (11)
  1. DUPIXENT [Suspect]
     Active Substance: DUPILUMAB
     Indication: Dermatitis atopic
     Route: 058
     Dates: start: 20200520
  2. DUPIXENT [Suspect]
     Active Substance: DUPILUMAB
     Dosage: 300 MG, Q3W
     Route: 058
     Dates: start: 20250217
  3. ALEVE [Concomitant]
     Active Substance: NAPROXEN SODIUM
  4. BETAMETHASONE [Concomitant]
     Active Substance: BETAMETHASONE
  5. PREDNISONE [Concomitant]
     Active Substance: PREDNISONE
  6. TRIAMTERENE [Concomitant]
     Active Substance: TRIAMTERENE
  7. LEVOTHYROXINE [Concomitant]
     Active Substance: LEVOTHYROXINE
  8. TACROLIMUS [Concomitant]
     Active Substance: TACROLIMUS
  9. FLUOROURACIL [Concomitant]
     Active Substance: FLUOROURACIL
  10. MUPIROCIN [Concomitant]
     Active Substance: MUPIROCIN
  11. CITALOPRAM [Concomitant]
     Active Substance: CITALOPRAM

REACTIONS (2)
  - Product prescribing issue [Unknown]
  - Inappropriate schedule of product administration [Unknown]

NARRATIVE: CASE EVENT DATE: 20250217
